FAERS Safety Report 7990914-8 (Version None)
Quarter: 2011Q4

REPORT INFORMATION
  Report Type: 
  Country: None (occurrence: None)
  Receive Date: 20111219
  Receipt Date: 20111212
  Transmission Date: 20120403
  Serious: Yes (Hospitalization)
  Sender: FDA-Public Use
  Company Number: JP-B.I. PHARMACEUTICALS,INC./RIDGEFIELD-2011-BP-26455NB

PATIENT
  Sex: Male
  Weight: 45.5 kg

DRUGS (15)
  1. PRADAXA [Suspect]
     Indication: ATRIAL FIBRILLATION
     Dosage: 220 MG
     Route: 048
     Dates: start: 20111003, end: 20111107
  2. ANTEBATE [Concomitant]
     Route: 065
  3. ALDACTONE [Concomitant]
  4. REZALTAS [Suspect]
     Indication: HYPERTENSION
     Route: 048
     Dates: start: 20101129
  5. EPLERENONE [Suspect]
     Indication: HYPERTENSION
     Dosage: 25 MG
     Route: 048
     Dates: start: 20101227, end: 20111104
  6. MAGNESIUM SULFATE [Concomitant]
     Indication: GASTROENTERITIS
     Dosage: 1500 MG
     Route: 048
     Dates: start: 20100301
  7. TSUMURA SAIBOKU-TO [Concomitant]
     Indication: BRONCHITIS CHRONIC
     Dosage: 7.5 MG
     Route: 048
     Dates: start: 20100201, end: 20111104
  8. SIGMART [Suspect]
     Indication: ANGINA PECTORIS
     Dosage: 15 MG
     Route: 048
     Dates: start: 19940830
  9. BIODIASMIN-F [Concomitant]
     Indication: GASTROENTERITIS
     Dosage: 2 G
     Route: 048
     Dates: start: 20100412
  10. ZYRTEC [Concomitant]
     Indication: ECZEMA
     Dosage: 10 MG
     Route: 048
     Dates: start: 20100510, end: 20111104
  11. HIRUDOID [Concomitant]
     Route: 065
  12. AZUCURENIN S [Concomitant]
     Indication: GASTROENTERITIS
     Dosage: 2 G
     Route: 048
     Dates: start: 20100412
  13. TRICHLORMETHIAZIDE [Suspect]
     Indication: HYPERTENSION
     Dosage: 0.5 MG
     Route: 048
     Dates: start: 20100510, end: 20111104
  14. MUCODYNE [Concomitant]
     Indication: BRONCHITIS CHRONIC
     Dosage: 1500 MG
     Route: 048
     Dates: start: 20101213, end: 20111104
  15. NEUER [Concomitant]
     Indication: GASTROENTERITIS
     Dosage: 1.5 G
     Route: 048
     Dates: start: 20100301

REACTIONS (1)
  - ERYTHEMA MULTIFORME [None]
